FAERS Safety Report 4610092-2 (Version None)
Quarter: 2005Q1

REPORT INFORMATION
  Report Type: 
  Country: None (occurrence: None)
  Receive Date: 20050316
  Receipt Date: 20050223
  Transmission Date: 20050727
  Serious: Yes (Hospitalization)
  Sender: FDA-Public Use
  Company Number: JP-SANOFI-SYNTHELABO-A01200501184

PATIENT
  Age: 842 Month
  Sex: Male

DRUGS (4)
  1. MYSLEE [Suspect]
     Indication: INSOMNIA
     Route: 048
     Dates: start: 20041214, end: 20050206
  2. DIOVAN [Concomitant]
     Indication: HYPERTENSION
     Dosage: 160 MG
     Route: 048
     Dates: start: 20021114
  3. CARDENALIN [Concomitant]
     Indication: HYPERTENSION
     Dosage: 2 MG
     Route: 048
     Dates: start: 20021114
  4. CEREKINON [Concomitant]
     Indication: GASTRITIS
     Dosage: 300 MG
     Route: 048

REACTIONS (2)
  - DELIRIUM [None]
  - RESTLESSNESS [None]
